FAERS Safety Report 8237277-0 (Version None)
Quarter: 2012Q1

REPORT INFORMATION
  Report Type: 
  Country: None (occurrence: None)
  Receive Date: 20120326
  Receipt Date: 20120326
  Transmission Date: 20120608
  Serious: Yes (Disabling)
  Sender: FDA-Public Use
  Company Number: None

PATIENT
  Age: 50 Year
  Sex: Female
  Weight: 58.9676 kg

DRUGS (1)
  1. RECLAST [Suspect]
     Indication: OSTEOPOROSIS
     Dosage: 5 MG 1 100 ML ONCE SHOULDER
     Dates: start: 20100401

REACTIONS (5)
  - SWELLING [None]
  - PYREXIA [None]
  - MOVEMENT DISORDER [None]
  - LOSS OF EMPLOYMENT [None]
  - BURNING SENSATION [None]
